FAERS Safety Report 8269578-4 (Version None)
Quarter: 2012Q2

REPORT INFORMATION
  Report Type: 
  Country: None (occurrence: None)
  Receive Date: 20120409
  Receipt Date: 20120402
  Transmission Date: 20120825
  Serious: Yes (Life-Threatening, Hospitalization)
  Sender: FDA-Public Use
  Company Number: FR-VERTEX PHARMACEUTICALS INC.-AE-2011-000311

PATIENT
  Sex: Male
  Weight: 76 kg

DRUGS (5)
  1. ALDACTONE [Concomitant]
     Indication: PROPHYLAXIS
     Dates: start: 20090217
  2. COPEGUS [Concomitant]
     Indication: HEPATITIS C
     Route: 048
     Dates: start: 20110407, end: 20110427
  3. TOCO [Concomitant]
     Indication: INSULIN RESISTANCE
     Dates: start: 20110131
  4. VX-950 [Suspect]
     Indication: HEPATITIS C
     Route: 048
     Dates: start: 20110407, end: 20110427
  5. PEGASYS [Concomitant]
     Indication: HEPATITIS C
     Route: 065
     Dates: start: 20110407, end: 20110427

REACTIONS (3)
  - ANAEMIA [None]
  - ESCHERICHIA SEPSIS [None]
  - ULCER HAEMORRHAGE [None]
